FAERS Safety Report 10244728 (Version 6)
Quarter: 2014Q4

REPORT INFORMATION
  Report Type: Spontaneous
  Country: US (occurrence: US)
  Receive Date: 20140618
  Receipt Date: 20141015
  Transmission Date: 20150528
  Serious: Yes (Death)
  Sender: FDA-Public Use
  Company Number: US-PFIZER INC-2014165574

PATIENT
  Age: 82 Year
  Sex: Male
  Weight: 67.1 kg

DRUGS (9)
  1. LORTAB [Concomitant]
     Active Substance: ACETAMINOPHEN\HYDROCODONE BITARTRATE
     Indication: PAIN
     Dosage: 1 DF, AS NEEDED (1 DF, EVERY 6 HOURS)
     Route: 048
     Dates: start: 20140424
  2. CELEXA [Concomitant]
     Active Substance: CITALOPRAM HYDROBROMIDE
     Dosage: 1 DF, DAILY (FOR 90 DAYS)
     Route: 048
     Dates: start: 20140513
  3. LANTUS [Concomitant]
     Active Substance: INSULIN GLARGINE
     Dosage: 14 IU, UNK (EACH MORNING)
  4. HUMALOG [Concomitant]
     Active Substance: INSULIN LISPRO
     Dosage: 4 UNITS EACH MORNING
  5. DECADRON [Concomitant]
     Active Substance: DEXAMETHASONE
     Dosage: 3 DF, UNK (TWO PILLS EACH MORNING, ONE PILL AT MIDDAY)
     Dates: start: 20140529
  6. HUMALOG [Concomitant]
     Active Substance: INSULIN LISPRO
     Dosage: UNK (WITH MEALS) FOR 360 DAYS, 100 UNIT/ML)
     Route: 058
     Dates: start: 20140424
  7. XALKORI [Suspect]
     Active Substance: CRIZOTINIB
     Indication: LUNG ADENOCARCINOMA
     Dosage: 250 MG, UNK
     Route: 048
     Dates: start: 201405
  8. INSULIN [Concomitant]
     Active Substance: INSULIN NOS
     Dosage: UNK
     Dates: start: 2008
  9. SENNA [Concomitant]
     Active Substance: SENNA LEAF\SENNOSIDES\SENNOSIDES A AND B
     Dosage: 1 DF, 2X/DAY (AS NEEDED) FOR 60 DOSES
     Route: 048
     Dates: start: 20140424

REACTIONS (2)
  - Disease progression [Fatal]
  - Lung adenocarcinoma [Fatal]
